FAERS Safety Report 5086209-5 (Version None)
Quarter: 2006Q3

REPORT INFORMATION
  Report Type: 
  Country: None (occurrence: None)
  Receive Date: 20060818
  Receipt Date: 20060804
  Transmission Date: 20061208
  Serious: Yes (Other)
  Sender: FDA-Public Use
  Company Number: 2006BL004529

PATIENT
  Age: 29 Year
  Sex: Male

DRUGS (5)
  1. DEXAMETHASONE [Suspect]
     Indication: PROPHYLAXIS OF NAUSEA AND VOMITING
     Dosage: 4 MILLIGRAMS; CYCLICAL; ORAL
     Route: 048
  2. BLEOMYCIN [Suspect]
     Indication: TESTIS CANCER
     Dosage: 30 INTERNATIONAL UNITS; CYCLICAL; ORAL
     Route: 048
  3. CISPLATIN [Suspect]
     Indication: TESTIS CANCER
     Dosage: 20 MILLIGRAMS PER SQUARE METER; CYCLICAL; ORAL
     Route: 048
  4. ETOPOSIDE [Suspect]
     Indication: TESTIS CANCER
     Dosage: 100 MILLIGRAMS PER SQUARE METER; UNKNOWN; ORAL
     Route: 048
  5. PREDNISOLONE SODIUM PHOSPHATE [Suspect]
     Indication: DRUG USE FOR UNKNOWN INDICATION

REACTIONS (1)
  - OSTEONECROSIS [None]
